FAERS Safety Report 6162747-9 (Version None)
Quarter: 2009Q2

REPORT INFORMATION
  Report Type: 
  Country: None (occurrence: None)
  Receive Date: 20090421
  Receipt Date: 20080424
  Transmission Date: 20091009
  Serious: No
  Sender: FDA-Public Use
  Company Number: US-ASTRAZENECA-2008UW08410

PATIENT
  Age: 86 Year
  Sex: Female
  Weight: 68 kg

DRUGS (7)
  1. TOPROL-XL [Suspect]
     Indication: HEART RATE INCREASED
     Route: 048
     Dates: start: 19990101
  2. ALBUTEROL [Concomitant]
  3. SPIRIVA [Concomitant]
  4. OXYGEN [Concomitant]
  5. TRIAMTERENE [Concomitant]
  6. CALCIUM [Concomitant]
  7. ZANTAC [Concomitant]

REACTIONS (4)
  - ASTHMA [None]
  - FATIGUE [None]
  - INSOMNIA [None]
  - MEMORY IMPAIRMENT [None]
